FAERS Safety Report 6815297-8 (Version None)
Quarter: 2010Q3

REPORT INFORMATION
  Report Type: 
  Country: None (occurrence: None)
  Receive Date: 20100701
  Receipt Date: 20100701
  Transmission Date: 20110219
  Serious: Yes (Hospitalization)
  Sender: FDA-Public Use
  Company Number: None

PATIENT
  Sex: Male
  Weight: 35.8342 kg

DRUGS (9)
  1. TORISEL [Suspect]
     Indication: PROSTATE CANCER
     Dosage: 25 MG WEEKLY IV
     Route: 042
     Dates: start: 20091112
  2. AMBIEN [Concomitant]
  3. EXJADE [Concomitant]
  4. LIPITOR [Concomitant]
  5. LISINOPRIL [Concomitant]
  6. LOPRON [Concomitant]
  7. MEGACE [Concomitant]
  8. NORCO [Concomitant]
  9. PHENAZOPYRIDINE HCL TAB [Concomitant]

REACTIONS (1)
  - RENAL FAILURE [None]
